FAERS Safety Report 19260123 (Version 1)
Quarter: 2021Q2

REPORT INFORMATION
  Report Type: Report from Study
  Country: US (occurrence: US)
  Receive Date: 20210514
  Receipt Date: 20210514
  Transmission Date: 20210717
  Serious: Yes (Other)
  Sender: FDA-Public Use
  Company Number: US-JAZZ-2020-US-013345

PATIENT
  Sex: Female

DRUGS (15)
  1. XYREM [Suspect]
     Active Substance: SODIUM OXYBATE
     Dosage: DOSE ADJUSTMENTS
     Route: 048
     Dates: start: 201907, end: 201910
  2. VYVANSE [Concomitant]
     Active Substance: LISDEXAMFETAMINE DIMESYLATE
  3. LISINOPRIL. [Concomitant]
     Active Substance: LISINOPRIL
  4. XYREM [Suspect]
     Active Substance: SODIUM OXYBATE
     Dosage: 4.5 GRAM, BID
     Route: 048
     Dates: start: 201910, end: 202009
  5. PROZAC [Concomitant]
     Active Substance: FLUOXETINE HYDROCHLORIDE
  6. IBUPROFEN. [Concomitant]
     Active Substance: IBUPROFEN
  7. THERAGRAN?M [MINERALS NOS;VITAMINS NOS] [Concomitant]
  8. ORTHO TRI CYCLEN LO [Concomitant]
     Active Substance: ETHINYL ESTRADIOL\NORGESTIMATE
  9. ARMODAFINIL. [Concomitant]
     Active Substance: ARMODAFINIL
  10. CLONAZEPAM. [Concomitant]
     Active Substance: CLONAZEPAM
  11. GABAPENTIN. [Concomitant]
     Active Substance: GABAPENTIN
  12. XYREM [Suspect]
     Active Substance: SODIUM OXYBATE
     Indication: NARCOLEPSY
     Dosage: 2.25 GRAM, BID
     Route: 048
     Dates: start: 201907, end: 201907
  13. FLUOXETINE HCL [Concomitant]
     Active Substance: FLUOXETINE HYDROCHLORIDE
  14. CORTISONE [Concomitant]
     Active Substance: CORTISONE
  15. WAKIX [Suspect]
     Active Substance: PITOLISANT HYDROCHLORIDE
     Indication: PRODUCT USED FOR UNKNOWN INDICATION
     Dosage: UNKNOWN DOSE

REACTIONS (6)
  - Weight decreased [Recovered/Resolved]
  - Blood pressure increased [Recovering/Resolving]
  - Headache [Recovering/Resolving]
  - Fluid retention [Not Recovered/Not Resolved]
  - COVID-19 [Unknown]
  - Anxiety [Unknown]

NARRATIVE: CASE EVENT DATE: 2020
